FAERS Safety Report 13677717 (Version 3)
Quarter: 2017Q3

REPORT INFORMATION
  Report Type: Spontaneous
  Country: IN (occurrence: IN)
  Receive Date: 20170622
  Receipt Date: 20170707
  Transmission Date: 20171127
  Serious: Yes (Life-Threatening, Hospitalization, Other)
  Sender: FDA-Public Use
  Company Number: IN-TORRENT-00001222

PATIENT
  Age: 17 Year
  Sex: Male

DRUGS (6)
  1. SODIUM VALPROATE [Suspect]
     Active Substance: VALPROATE SODIUM
  2. PROMETHAZINE [Concomitant]
     Active Substance: PROMETHAZINE\PROMETHAZINE HYDROCHLORIDE
  3. HALOPERIDOL. [Concomitant]
     Active Substance: HALOPERIDOL
  4. CHLORPROMAZINE. [Concomitant]
     Active Substance: CHLORPROMAZINE
  5. OLANZAPINE. [Suspect]
     Active Substance: OLANZAPINE
  6. LORAZEPAM. [Concomitant]
     Active Substance: LORAZEPAM

REACTIONS (6)
  - Productive cough [Recovered/Resolved]
  - Off label use [Unknown]
  - Diarrhoea [Recovered/Resolved]
  - Drug hypersensitivity [Recovered/Resolved]
  - Bronchitis [Recovered/Resolved]
  - Drug reaction with eosinophilia and systemic symptoms [Recovered/Resolved]
